FAERS Safety Report 7371894-5 (Version None)
Quarter: 2011Q1

REPORT INFORMATION
  Report Type: 
  Country: None (occurrence: None)
  Receive Date: 20110324
  Receipt Date: 20110317
  Transmission Date: 20110831
  Serious: Yes (Hospitalization)
  Sender: FDA-Public Use
  Company Number: US-SANOFI-AVENTIS-2011SA012264

PATIENT
  Age: 65 Year
  Sex: Male
  Weight: 120 kg

DRUGS (2)
  1. SOLOSTAR [Suspect]
  2. LANTUS [Suspect]
     Indication: DIABETES MELLITUS
     Dosage: AS PER SLIDING SCALE DEPENDING ON BLOOD SURGAR LEVELS
     Route: 058

REACTIONS (1)
  - PULMONARY HYPERTENSION [None]
